FAERS Safety Report 7911306 (Version 2)
Quarter: 2013Q2

REPORT INFORMATION
  Report Type: Report from Study
  Country: FR (occurrence: FR)
  Receive Date: 20110422
  Receipt Date: 20130507
  Transmission Date: 20140414
  Serious: Yes (Death, Other)
  Sender: FDA-Public Use
  Company Number: FR-ROCHE-772103

PATIENT
  Sex: 0

DRUGS (5)
  1. RITUXIMAB [Suspect]
     Indication: CHRONIC LYMPHOCYTIC LEUKAEMIA
     Dosage: ON DAY1 AND 8: 500MG/M2, ON DAY5: 375MG/M2
     Route: 065
  2. MYCOPHENOLATE MOFETIL [Suspect]
     Indication: PROPHYLAXIS AGAINST GRAFT VERSUS HOST DISEASE
     Route: 048
  3. FLUDARABINE [Suspect]
     Indication: CHRONIC LYMPHOCYTIC LEUKAEMIA
     Route: 065
  4. CICLOSPORIN [Suspect]
     Indication: PROPHYLAXIS AGAINST GRAFT VERSUS HOST DISEASE
     Dosage: FROM DAY -2
     Route: 048
  5. CICLOSPORIN [Suspect]
     Indication: PROPHYLAXIS AGAINST GRAFT VERSUS HOST DISEASE
     Dosage: FROM DAY -2
     Route: 042

REACTIONS (15)
  - Infection [Fatal]
  - Liver disorder [Unknown]
  - Metabolic disorder [Unknown]
  - Renal disorder [Unknown]
  - Urogenital disorder [Unknown]
  - Multi-organ failure [Unknown]
  - Skin disorder [Unknown]
  - Hypersensitivity [Unknown]
  - Pancytopenia [Unknown]
  - Diarrhoea [Unknown]
  - Febrile neutropenia [Unknown]
  - Pyrexia [Unknown]
  - Pain [Unknown]
  - Lung disorder [Unknown]
  - Sepsis [Unknown]
